FAERS Safety Report 8805234 (Version 2)
Quarter: 2015Q1

REPORT INFORMATION
  Report Type: Report from Study
  Country: US (occurrence: US)
  Receive Date: 20120924
  Receipt Date: 20150320
  Transmission Date: 20150721
  Serious: Yes (Death)
  Sender: FDA-Public Use
  Company Number: US-ROCHE-1125928

PATIENT
  Sex: Female

DRUGS (8)
  1. ALOXI [Concomitant]
     Active Substance: PALONOSETRON HYDROCHLORIDE
     Route: 042
  2. ATIVAN [Concomitant]
     Active Substance: LORAZEPAM
     Route: 048
  3. ELOXATIN [Concomitant]
     Active Substance: OXALIPLATIN
     Route: 065
  4. AVASTIN [Suspect]
     Active Substance: BEVACIZUMAB
     Route: 042
  5. XELODA [Concomitant]
     Active Substance: CAPECITABINE
     Route: 065
  6. ANZEMET [Concomitant]
     Active Substance: DOLASETRON MESYLATE
     Route: 065
  7. AVASTIN [Suspect]
     Active Substance: BEVACIZUMAB
     Indication: COLON CANCER
     Route: 042
  8. DEXAMETHASONE. [Concomitant]
     Active Substance: DEXAMETHASONE
     Route: 042

REACTIONS (2)
  - Death [Fatal]
  - Diarrhoea [Unknown]
